FAERS Safety Report 5218312-0 (Version None)
Quarter: 2007Q1

REPORT INFORMATION
  Report Type: 
  Country: None (occurrence: None)
  Receive Date: 20070124
  Receipt Date: 20070112
  Transmission Date: 20070707
  Serious: Yes (Hospitalization)
  Sender: FDA-Public Use
  Company Number: US-PFIZER INC-2007003787

PATIENT
  Sex: Male
  Weight: 71.7 kg

DRUGS (1)
  1. SUTENT [Suspect]
     Route: 048

REACTIONS (1)
  - THROMBOSIS [None]
